FAERS Safety Report 7774302-5 (Version None)
Quarter: 2011Q3

REPORT INFORMATION
  Report Type: 
  Country: None (occurrence: None)
  Receive Date: 20110923
  Receipt Date: 20110921
  Transmission Date: 20111222
  Serious: Yes (Other)
  Sender: FDA-Public Use
  Company Number: US-SHIRE-ALL1-2011-02809

PATIENT
  Sex: Male
  Weight: 70.295 kg

DRUGS (8)
  1. PRAVACHOL [Concomitant]
     Indication: BLOOD CHOLESTEROL INCREASED
     Dosage: 20 MG, 1X/DAY:QD
     Route: 048
  2. TAMSULOSIN HCL [Concomitant]
     Indication: PROSTATE CANCER
     Dosage: 0.4 MG, 1X/DAY:QD
     Route: 048
     Dates: start: 20090101
  3. LIALDA [Suspect]
     Indication: COLITIS ULCERATIVE
     Dosage: 4.8 G, 1X/DAY:QD (FOUR 1.2 GM TABLETS)
     Route: 048
     Dates: end: 20110609
  4. SIMVASTATIN [Concomitant]
     Indication: BLOOD CHOLESTEROL INCREASED
     Dosage: 40 MG, 1X/DAY:QD
     Route: 048
  5. HYDROCHLOROTHIAZIDE [Concomitant]
     Indication: HYPERTENSION
     Dosage: 25 MG, 1X/DAY:QD
     Route: 048
  6. PRORENAL [Concomitant]
     Indication: NEPHROPATHY
     Dosage: 3 DF, 1X/DAY:QD
     Route: 048
  7. PLAVIX [Concomitant]
     Indication: ANTICOAGULANT THERAPY
     Dosage: 75 MG, 1X/DAY:QD
     Route: 048
  8. HUMIRA [Concomitant]
     Indication: COLITIS ULCERATIVE
     Dosage: 40 MG, 1X/WEEK
     Route: 058

REACTIONS (3)
  - PNEUMONIA [None]
  - DIARRHOEA [None]
  - LIVER FUNCTION TEST ABNORMAL [None]
